FAERS Safety Report 9863962 (Version 3)
Quarter: 2014Q1

REPORT INFORMATION
  Report Type: Report from Study
  Country: FR (occurrence: FR)
  Receive Date: 20140203
  Receipt Date: 20140217
  Transmission Date: 20141002
  Serious: Yes (Hospitalization)
  Sender: FDA-Public Use
  Company Number: PHHO2014FR001691

PATIENT
  Sex: 0

DRUGS (4)
  1. IMATINIB [Suspect]
     Indication: ACUTE LYMPHOCYTIC LEUKAEMIA
     Dosage: 500 MG, QD
     Route: 048
     Dates: start: 20101215
  2. IMATINIB [Suspect]
     Dosage: NO TREATMENT
     Dates: start: 20110424, end: 20110506
  3. IMATINIB [Suspect]
     Dosage: 500 MG, QD
     Route: 048
  4. H2-RECEPTOR ANTAGONISTS [Concomitant]
     Dosage: UNK
     Dates: start: 20110413, end: 20110518

REACTIONS (3)
  - Mucosal inflammation [Recovered/Resolved]
  - Septic shock [Recovered/Resolved]
  - Bacteraemia [Recovered/Resolved]
